FAERS Safety Report 17488158 (Version 8)
Quarter: 2022Q1

REPORT INFORMATION
  Report Type: Spontaneous
  Country: US (occurrence: US)
  Receive Date: 20200303
  Receipt Date: 20220207
  Transmission Date: 20220423
  Serious: Yes (Other)
  Sender: FDA-Public Use
  Company Number: US-PFIZER INC-2020093883

PATIENT
  Age: 79 Year
  Sex: Female

DRUGS (1)
  1. TOVIAZ [Suspect]
     Active Substance: FESOTERODINE FUMARATE
     Dosage: UNK

REACTIONS (8)
  - Spinal disorder [Unknown]
  - Memory impairment [Unknown]
  - Osteoarthritis [Unknown]
  - Nasopharyngitis [Unknown]
  - Illness [Unknown]
  - Arthritis [Unknown]
  - Bladder disorder [Unknown]
  - Oropharyngeal discomfort [Unknown]
